FAERS Safety Report 24287321 (Version 1)
Quarter: 2024Q3

REPORT INFORMATION
  Report Type: Spontaneous
  Country: US (occurrence: US)
  Receive Date: 20240905
  Receipt Date: 20240905
  Transmission Date: 20241017
  Serious: Yes (Hospitalization)
  Sender: ELI LILLY AND CO
  Company Number: US-ELI_LILLY_AND_COMPANY-US202409000492

PATIENT
  Age: 73 Year
  Sex: Female

DRUGS (1)
  1. TIRZEPATIDE [Suspect]
     Active Substance: TIRZEPATIDE
     Indication: Weight control
     Dosage: 75 U, UNKNOWN
     Route: 058

REACTIONS (3)
  - Fall [Not Recovered/Not Resolved]
  - Hypervitaminosis B6 [Not Recovered/Not Resolved]
  - Product tampering [Unknown]

NARRATIVE: CASE EVENT DATE: 20240601
